FAERS Safety Report 22323319 (Version 1)
Quarter: 2023Q2

REPORT INFORMATION
  Report Type: Spontaneous
  Country: TN (occurrence: TN)
  Receive Date: 20230516
  Receipt Date: 20230516
  Transmission Date: 20230722
  Serious: Yes (Other)
  Sender: FDA-Public Use
  Company Number: None

PATIENT
  Age: 27 Year
  Sex: Female

DRUGS (4)
  1. PREDNISONE [Suspect]
     Active Substance: PREDNISONE
     Indication: Myasthenia gravis
     Dosage: 15 MILLIGRAM, QD
     Route: 048
     Dates: start: 2021
  2. PREDNISONE [Suspect]
     Active Substance: PREDNISONE
     Dosage: 50 MG/DAY, ONCE A DAY
     Route: 048
     Dates: start: 2021, end: 2021
  3. AZATHIOPRINE [Suspect]
     Active Substance: AZATHIOPRINE
     Indication: Myasthenia gravis
     Dosage: 50 MILLIGRAM, 12 HOURS, PILL
     Route: 065
     Dates: start: 2021
  4. PYRIDOSTIGMINE [Concomitant]
     Active Substance: PYRIDOSTIGMINE
     Indication: Myasthenia gravis
     Dosage: 60 MG PILL, THREE TIMES A DAY, FOR LIFE
     Route: 048
     Dates: start: 2021

REACTIONS (3)
  - Alveolar proteinosis [None]
  - Condition aggravated [None]
  - Off label use [Unknown]

NARRATIVE: CASE EVENT DATE: 20210101
